FAERS Safety Report 18462373 (Version 3)
Quarter: 2020Q4

REPORT INFORMATION
  Report Type: Spontaneous
  Country: US (occurrence: US)
  Receive Date: 20201104
  Receipt Date: 20201124
  Transmission Date: 20210114
  Serious: No
  Sender: FDA-Public Use
  Company Number: US-AMGEN-USASP2020173874

PATIENT
  Age: 73 Year
  Sex: Male

DRUGS (2)
  1. REPATHA [Suspect]
     Active Substance: EVOLOCUMAB
     Indication: CORONARY ARTERY DISEASE
     Dosage: 420 MILLIGRAM
     Route: 065
     Dates: start: 20160325
  2. REPATHA [Suspect]
     Active Substance: EVOLOCUMAB
     Indication: TYPE V HYPERLIPIDAEMIA
     Dosage: 420 UNK
     Route: 065

REACTIONS (3)
  - Underdose [Unknown]
  - Accidental exposure to product [Unknown]
  - Device difficult to use [Unknown]

NARRATIVE: CASE EVENT DATE: 20201026
